FAERS Safety Report 5671861-3 (Version None)
Quarter: 2008Q1

REPORT INFORMATION
  Report Type: 
  Country: None (occurrence: None)
  Receive Date: 20080317
  Receipt Date: 20080317
  Transmission Date: 20080703
  Serious: No
  Sender: FDA-Public Use
  Company Number: None

PATIENT
  Age: 18 Year
  Sex: Male
  Weight: 30 kg

DRUGS (1)
  1. TOPIRAMATE [Suspect]
     Indication: EPILEPSY
     Dosage: 250 2 TIMES PO
     Route: 048
     Dates: start: 20050111, end: 20080316

REACTIONS (3)
  - ABNORMAL BEHAVIOUR [None]
  - LEARNING DISORDER [None]
  - MEMORY IMPAIRMENT [None]
